FAERS Safety Report 7794308-X (Version None)
Quarter: 2011Q4

REPORT INFORMATION
  Report Type: 
  Country: None (occurrence: None)
  Receive Date: 20111004
  Receipt Date: 20110922
  Transmission Date: 20120403
  Serious: Yes (Hospitalization, Other)
  Sender: FDA-Public Use
  Company Number: JP-SANOFI-AVENTIS-2011SA024930

PATIENT
  Age: 56 Year
  Sex: Male
  Weight: 66 kg

DRUGS (23)
  1. OXALIPLATIN [Suspect]
     Indication: RECTAL CANCER
     Dosage: ROUTE: DR (DRIP);  103.4 MG/M2, SECOND CYCLE
     Dates: start: 20100703, end: 20100703
  2. FLUOROURACIL [Suspect]
     Dosage: BOLUS INTRAVENOUS INFUSION (BIV), DOSE: 373.6 MG/M2
     Route: 040
     Dates: start: 20110619, end: 20110619
  3. FLUOROURACIL [Suspect]
     Dosage: BOLUS INTRAVENOUS INFUSION(BIV), DOSE: 287.4 MG/M2, 3RD CYCLE
     Route: 040
     Dates: start: 20100724, end: 20100724
  4. FLUOROURACIL [Suspect]
     Dosage: CONTINUOUS INFUSION (DR), DOSE 2298.9 MG/M2/D1-2 (4TH TO 10TH CYCLE)
     Route: 065
     Dates: start: 20100908, end: 20101222
  5. THERAPEUTIC RADIOPHARMACEUTICALS [Concomitant]
     Indication: RECTAL CANCER
     Dosage: 1.8 GRAY (GY)/DAY
     Route: 065
     Dates: start: 20100609, end: 20100710
  6. OXALIPLATIN [Suspect]
     Dosage: ROUTE: DR (DRIP);  86.2 MG/M2, 4TH CYCLE TO10TH CYCLE
     Dates: start: 20100908, end: 20101222
  7. FLUOROURACIL [Suspect]
     Indication: RECTAL CANCER
     Route: 065
  8. OXALIPLATIN [Suspect]
     Dosage: ROUTE: DR (DRIP);  103.4 MG/M2, FIRST CYCLE
     Dates: start: 20100619, end: 20100619
  9. FLUOROURACIL [Suspect]
     Dosage: CONTINUOUS INFUSION (DR), DOSE 2298.9 MG/M2/D1-2, 3RD CYCLE
     Route: 065
     Dates: start: 20100724, end: 20100725
  10. AVASTIN [Suspect]
     Indication: RECTAL CANCER
     Dosage: ROUTE: DR (DRIP)
     Route: 065
     Dates: start: 20100703, end: 20100703
  11. LEVOLEUCOVORIN CALCIUM [Concomitant]
     Indication: RECTAL CANCER
     Dosage: ROUTE: DR (DRIP); 218.4 MG/M2
     Dates: start: 20100619, end: 20100619
  12. OXALIPLATIN [Suspect]
     Dosage: ROUTE: DR (DRIP);  71.8 MG/M2, 3RD CYCLE
     Dates: start: 20100724, end: 20100724
  13. OXALIPLATIN [Suspect]
     Route: 065
  14. LEVOLEUCOVORIN CALCIUM [Concomitant]
     Dosage: FROM CYCLE 4 TO CYCLE 10; 201.1 MG/M2
     Dates: start: 20100908, end: 20101222
  15. FLUOROURACIL [Suspect]
     Dosage: BOLUS INTRAVENOUS INFUSION(BIV), DOSE: 344.8 MG/M2
     Route: 040
     Dates: start: 20100703, end: 20100703
  16. FLUOROURACIL [Suspect]
     Dosage: CONTINUOUS INFUSION (DR), DOSE 2298.9 MG/M2/D1-2
     Route: 065
     Dates: start: 20100703, end: 20100704
  17. AVASTIN [Suspect]
     Dosage: ROUTE: DR (DRIP)
     Route: 065
     Dates: start: 20100619, end: 20100619
  18. LEVOLEUCOVORIN CALCIUM [Concomitant]
     Dosage: ROUTE: DR (DRIP); 201.1 MG/M2
     Dates: start: 20100703, end: 20100703
  19. FLUOROURACIL [Suspect]
     Dosage: BOLUS INTRAVENOUS INFUSION(BIV), DOSE: 373.6 MG/M2, ON DAY 1 OF EVERY CYCLE (4TH TO 10TH CYCLE)
     Route: 040
     Dates: start: 20100908, end: 20101222
  20. AVASTIN [Suspect]
     Dosage: ROUTE: DR (DRIP)
     Route: 065
     Dates: start: 20100724, end: 20100724
  21. LEVOLEUCOVORIN CALCIUM [Concomitant]
     Dosage: ROUTE: DR (DRIP); 172.4 MG/M2, 3RD CYCLE
     Dates: start: 20100724, end: 20100724
  22. FLUOROURACIL [Suspect]
     Dosage: CONTINUOUS INFUSION (DR), DOSE 2471.3 MG/M2/D1-2
     Route: 065
     Dates: start: 20110619, end: 20110620
  23. THERAPEUTIC RADIOPHARMACEUTICALS [Concomitant]
     Dosage: 1.8 GRAY (GY)/DAY
     Route: 065
     Dates: start: 20100727, end: 20100730

REACTIONS (13)
  - DECREASED APPETITE [None]
  - ABSCESS [None]
  - HAEMOGLOBIN DECREASED [None]
  - PLATELET COUNT DECREASED [None]
  - ABDOMINAL ADHESIONS [None]
  - DIARRHOEA [None]
  - WHITE BLOOD CELL COUNT DECREASED [None]
  - PYREXIA [None]
  - PERINEAL PAIN [None]
  - RED BLOOD CELL COUNT DECREASED [None]
  - TONSILLITIS [None]
  - SMALL INTESTINAL PERFORATION [None]
  - ILEUS [None]
